FAERS Safety Report 4675300-0 (Version None)
Quarter: 2005Q2

REPORT INFORMATION
  Report Type: 
  Country: None (occurrence: None)
  Receive Date: 20050525
  Receipt Date: 20050512
  Transmission Date: 20051028
  Serious: Yes (Death, Other)
  Sender: FDA-Public Use
  Company Number: 2005075182

PATIENT
  Age: 31 Year
  Sex: Male
  Weight: 100 kg

DRUGS (7)
  1. GABAPENTIN [Suspect]
     Indication: PAIN
     Dosage: 1800 MG (300 MG, 6 IN 1 D), ORAL
     Route: 048
     Dates: start: 20020107
  2. METHADONE HCL [Suspect]
     Indication: PAIN
     Dosage: ORAL
     Route: 048
     Dates: start: 20020115
  3. DEBRISOQUINE                                       (DEBRISOQUINE) [Suspect]
     Indication: PAIN
     Dates: start: 20020107
  4. TRAMADOL HCL [Concomitant]
  5. MORPHINE [Concomitant]
  6. CO-PROXAMOL [Concomitant]
  7. MEPERIDINE HCL [Concomitant]

REACTIONS (1)
  - DRUG INTERACTION [None]
